FAERS Safety Report 6644461-6 (Version None)
Quarter: 2010Q1

REPORT INFORMATION
  Report Type: 
  Country: None (occurrence: None)
  Receive Date: 20100319
  Receipt Date: 20100319
  Transmission Date: 20100710
  Serious: Yes (Hospitalization)
  Sender: FDA-Public Use
  Company Number: None

PATIENT
  Age: 85 Year
  Sex: Female
  Weight: 57.2 kg

DRUGS (10)
  1. ASPIRIN [Suspect]
     Indication: MITRAL VALVE REPLACEMENT
     Dosage: 81 MG DAILY PO, CHRONIC
     Route: 048
  2. COUMADIN [Suspect]
     Indication: ATRIAL FIBRILLATION
     Dosage: 5 MG MWF PO, CHRONIC
     Route: 048
  3. DILTIAZEM HCL [Concomitant]
     Indication: ATRIAL FIBRILLATION
     Dosage: 2.5 MG T TH S PO, CHRONIC
     Route: 048
  4. NIACIN [Concomitant]
  5. ALTACE [Concomitant]
  6. PRAVASTATIN [Concomitant]
  7. ACTONEL [Concomitant]
  8. VIT D [Concomitant]
  9. M.V.I. [Concomitant]
  10. LATANOPROST [Concomitant]

REACTIONS (3)
  - APHASIA [None]
  - CONVULSION [None]
  - SUBDURAL HAEMATOMA [None]
